FAERS Safety Report 13105179 (Version 1)
Quarter: 2017Q1

REPORT INFORMATION
  Report Type: Spontaneous
  Country: US (occurrence: US)
  Receive Date: 20170111
  Receipt Date: 20170111
  Transmission Date: 20170428
  Serious: No
  Sender: FDA-Public Use
  Company Number: US-BAYER-2017-005261

PATIENT
  Age: 47 Year
  Sex: Female
  Weight: 70 kg

DRUGS (1)
  1. MIRALAX [Suspect]
     Active Substance: POLYETHYLENE GLYCOL 3350
     Indication: GASTROINTESTINAL DISORDER
     Dosage: UNK DF, QD(;1/2 DOSE ONCE DAILY DOSE)
     Route: 048
     Dates: start: 2016, end: 201612

REACTIONS (6)
  - Underdose [Unknown]
  - Flatulence [Recovered/Resolved with Sequelae]
  - Product use issue [Unknown]
  - Abdominal distension [Unknown]
  - Abdominal distension [Recovered/Resolved with Sequelae]
  - Flatulence [Unknown]

NARRATIVE: CASE EVENT DATE: 201612
